FAERS Safety Report 5232072-9 (Version None)
Quarter: 2007Q1

REPORT INFORMATION
  Report Type: 
  Country: None (occurrence: None)
  Receive Date: 20061201
  Receipt Date: 20060829
  Transmission Date: 20070707
  Serious: No
  Sender: FDA-Public Use
  Company Number: US200608006623

PATIENT
  Sex: Male

DRUGS (1)
  1. CYMBALTA [Suspect]
     Dosage: 120 MG, ORAL
     Route: 048

REACTIONS (1)
  - DISTRACTIBILITY [None]
